FAERS Safety Report 7206216-3 (Version None)
Quarter: 2011Q1

REPORT INFORMATION
  Report Type: 
  Country: None (occurrence: None)
  Receive Date: 20110103
  Receipt Date: 20101227
  Transmission Date: 20110831
  Serious: Yes (Other)
  Sender: FDA-Public Use
  Company Number: FR-SANOFI-AVENTIS-2010SA078175

PATIENT
  Age: 37 Year
  Sex: Female

DRUGS (7)
  1. ZOLMITRIPTAN [Concomitant]
  2. BIPROFENID [Concomitant]
  3. RHINOFLUIMUCIL [Concomitant]
  4. OMEPRAZOLE [Concomitant]
  5. CEFPODOXIME PROXETIL [Concomitant]
  6. XATRAL [Suspect]
     Route: 048
     Dates: start: 20101203, end: 20101204
  7. ACETAMINOPHEN AND TRAMADOL HCL [Concomitant]

REACTIONS (6)
  - DRUG DISPENSING ERROR [None]
  - CONDITION AGGRAVATED [None]
  - HEADACHE [None]
  - DEAFNESS UNILATERAL [None]
  - EAR CONGESTION [None]
  - NASAL CONGESTION [None]
